FAERS Safety Report 10227577 (Version 1)
Quarter: 2014Q2

REPORT INFORMATION
  Report Type: Report from Study
  Country: DE (occurrence: DE)
  Receive Date: 20140610
  Receipt Date: 20140610
  Transmission Date: 20141212
  Serious: Yes (Congenital Anomaly)
  Sender: FDA-Public Use
  Company Number: DE-BAYER-2014-081152

PATIENT
  Sex: 0

DRUGS (6)
  1. MOXIFLOXACIN [Suspect]
     Dosage: 400 MG, UNK
     Route: 064
  2. MOXIFLOXACIN [Suspect]
     Dosage: 400 MG, UNK
     Route: 064
  3. LEVOFLOXACIN [Suspect]
     Dosage: 500 MG, UNK
     Route: 064
  4. LEVOFLOXACIN [Suspect]
     Dosage: 500 MG, UNK
     Route: 064
  5. GLATIRAMER [Concomitant]
     Route: 064
  6. GLATIRAMER [Concomitant]
     Route: 064

REACTIONS (2)
  - Atrioventricular septal defect [None]
  - Foetal exposure during pregnancy [None]
